FAERS Safety Report 7032142-9 (Version None)
Quarter: 2010Q4

REPORT INFORMATION
  Report Type: 
  Country: None (occurrence: None)
  Receive Date: 20101007
  Receipt Date: 20100929
  Transmission Date: 20110411
  Serious: Yes (Other)
  Sender: FDA-Public Use
  Company Number: US-BAXTER-2010BH021770

PATIENT
  Age: 34 Year
  Sex: Female
  Weight: 63 kg

DRUGS (12)
  1. GAMMAGARD LIQUID [Suspect]
     Indication: CHRONIC INFLAMMATORY DEMYELINATING POLYRADICULONEUROPATHY
     Route: 042
     Dates: start: 20100817, end: 20100817
  2. GAMMAGARD LIQUID [Suspect]
     Indication: OFF LABEL USE
     Route: 042
     Dates: start: 20100817, end: 20100817
  3. GAMMAGARD LIQUID [Suspect]
     Route: 042
     Dates: start: 20070919
  4. GAMMAGARD LIQUID [Suspect]
     Route: 042
     Dates: start: 20070919
  5. GAMMAGARD LIQUID [Suspect]
     Route: 042
     Dates: start: 20100915, end: 20100915
  6. GAMMAGARD LIQUID [Suspect]
     Route: 042
     Dates: start: 20100915, end: 20100915
  7. GAMMAGARD LIQUID [Suspect]
     Route: 042
     Dates: start: 20100326
  8. GAMMAGARD LIQUID [Suspect]
     Route: 042
     Dates: start: 20100326
  9. GAMMAGARD LIQUID [Suspect]
     Route: 042
     Dates: start: 20100902, end: 20100902
  10. GAMMAGARD LIQUID [Suspect]
     Route: 042
     Dates: start: 20100902, end: 20100902
  11. MULTI-VITAMINS [Concomitant]
     Route: 048
  12. TYLENOL [Concomitant]
     Indication: PREMEDICATION
     Route: 048

REACTIONS (2)
  - PRURITUS [None]
  - URTICARIA [None]
